FAERS Safety Report 24670738 (Version 1)
Quarter: 2024Q4

REPORT INFORMATION
  Report Type: Spontaneous
  Country: KZ (occurrence: None)
  Receive Date: 20241127
  Receipt Date: 20241127
  Transmission Date: 20250115
  Serious: Yes (Hospitalization, Disabling)
  Sender: Public
  Company Number: None

PATIENT
  Age: 30 Year
  Sex: Female
  Weight: 90 kg

DRUGS (8)
  1. CARIPRAZINE [Suspect]
     Active Substance: CARIPRAZINE
     Indication: Bipolar disorder
     Dosage: OTHER QUANTITY : 1 CAPSULE(S);?
     Route: 048
  2. CARIPRAZINE [Concomitant]
     Active Substance: CARIPRAZINE
  3. LAMOTRIGINE [Concomitant]
     Active Substance: LAMOTRIGINE
  4. CLOZAPINE [Concomitant]
     Active Substance: CLOZAPINE
  5. METFORMIN [Concomitant]
     Active Substance: METFORMIN HYDROCHLORIDE
  6. EMPAGLIFLOZIN [Concomitant]
     Active Substance: EMPAGLIFLOZIN
  7. TRULICITY [Concomitant]
     Active Substance: DULAGLUTIDE
  8. RISPERIDONE [Suspect]
     Active Substance: RISPERIDONE

REACTIONS (13)
  - Blood prolactin increased [None]
  - Blood insulin increased [None]
  - Polycystic ovaries [None]
  - Hepatomegaly [None]
  - Splenomegaly [None]
  - Dyspepsia [None]
  - Gastrooesophageal reflux disease [None]
  - Gastritis [None]
  - Duodenitis [None]
  - Lymphangiectasia [None]
  - Pancreatic disorder [None]
  - Vomiting [None]
  - Diabetes mellitus [None]

NARRATIVE: CASE EVENT DATE: 20241127
